FAERS Safety Report 20112693 (Version 2)
Quarter: 2022Q2

REPORT INFORMATION
  Report Type: Spontaneous
  Country: NO (occurrence: NO)
  Receive Date: 20211125
  Receipt Date: 20220621
  Transmission Date: 20220721
  Serious: Yes (Hospitalization, Disabling, Other)
  Sender: FDA-Public Use
  Company Number: NO-ABBVIE-21K-122-4174931-00

PATIENT
  Age: 20 Year
  Sex: Female

DRUGS (15)
  1. HUMIRA [Suspect]
     Active Substance: ADALIMUMAB
     Indication: Crohn^s disease
     Route: 058
     Dates: start: 20140109, end: 20140310
  2. HUMIRA [Suspect]
     Active Substance: ADALIMUMAB
     Route: 058
     Dates: start: 20140618, end: 201601
  3. HUMIRA [Suspect]
     Active Substance: ADALIMUMAB
     Route: 058
     Dates: start: 2016
  4. HUMIRA [Suspect]
     Active Substance: ADALIMUMAB
     Route: 058
     Dates: start: 201701
  5. HUMIRA [Suspect]
     Active Substance: ADALIMUMAB
     Route: 058
     Dates: start: 20170523
  6. HUMIRA [Suspect]
     Active Substance: ADALIMUMAB
     Route: 058
     Dates: start: 201801
  7. AZATHIOPRINE SODIUM [Concomitant]
     Active Substance: AZATHIOPRINE SODIUM
     Indication: Product used for unknown indication
     Dates: start: 20140310, end: 201801
  8. ENTOCORT [Concomitant]
     Active Substance: BUDESONIDE
     Indication: Product used for unknown indication
     Dates: start: 201903
  9. PENTASA [Concomitant]
     Active Substance: MESALAMINE
     Indication: Infection
     Dates: start: 201903
  10. PENTASA [Concomitant]
     Active Substance: MESALAMINE
     Indication: Enteritis
  11. PENTASA [Concomitant]
     Active Substance: MESALAMINE
     Indication: Fistula
  12. CIPROFLOXACIN [Concomitant]
     Active Substance: CIPROFLOXACIN
     Indication: Product used for unknown indication
  13. FLAGYL [Concomitant]
     Active Substance: METRONIDAZOLE\METRONIDAZOLE HYDROCHLORIDE
     Indication: Infection
  14. FLAGYL [Concomitant]
     Active Substance: METRONIDAZOLE\METRONIDAZOLE HYDROCHLORIDE
     Indication: Enteritis
  15. FLAGYL [Concomitant]
     Active Substance: METRONIDAZOLE\METRONIDAZOLE HYDROCHLORIDE
     Indication: Fistula

REACTIONS (28)
  - Intestinal perforation [Recovered/Resolved with Sequelae]
  - Procedural pain [Not Recovered/Not Resolved]
  - Ileus [Unknown]
  - Peritonitis [Unknown]
  - Intestinal perforation [Unknown]
  - Crohn^s disease [Recovered/Resolved]
  - Intestinal stenosis [Unknown]
  - Postoperative adhesion [Unknown]
  - Gastrointestinal disorder [Unknown]
  - Crohn^s disease [Unknown]
  - Infection [Unknown]
  - Enteritis [Unknown]
  - Small intestinal stenosis [Unknown]
  - Abscess [Unknown]
  - Crohn^s disease [Unknown]
  - Scar [Unknown]
  - Fistula [Unknown]
  - Pyrexia [Unknown]
  - Post procedural pneumonia [Unknown]
  - Unevaluable event [Unknown]
  - Infection susceptibility increased [Unknown]
  - Crohn^s disease [Unknown]
  - Intentional product misuse [Unknown]
  - Crohn^s disease [Recovered/Resolved]
  - Crohn^s disease [Recovered/Resolved]
  - Crohn^s disease [Unknown]
  - Phobia [Recovered/Resolved]
  - Scar [Unknown]

NARRATIVE: CASE EVENT DATE: 20140301
